FAERS Safety Report 14859695 (Version 1)
Quarter: 2018Q2

REPORT INFORMATION
  Report Type: Spontaneous
  Country: US (occurrence: US)
  Receive Date: 20180508
  Receipt Date: 20180508
  Transmission Date: 20180711
  Serious: No
  Sender: FDA-Public Use
  Company Number: US-PFIZER INC-2017062434

PATIENT
  Age: 76 Year
  Sex: Female
  Weight: 76.2 kg

DRUGS (1)
  1. XELJANZ XR [Suspect]
     Active Substance: TOFACITINIB CITRATE
     Indication: RHEUMATOID ARTHRITIS
     Dosage: 11 MG, 1X/DAY
     Route: 048
     Dates: start: 201701, end: 201801

REACTIONS (3)
  - Chronic obstructive pulmonary disease [Unknown]
  - Cough [Not Recovered/Not Resolved]
  - Condition aggravated [Unknown]
